FAERS Safety Report 7909600-5 (Version None)
Quarter: 2011Q4

REPORT INFORMATION
  Report Type: 
  Country: None (occurrence: None)
  Receive Date: 20111111
  Receipt Date: 20110729
  Transmission Date: 20120403
  Serious: No
  Sender: FDA-Public Use
  Company Number: US-BAYER-2011-069466

PATIENT
  Sex: Female

DRUGS (4)
  1. ALEVE (CAPLET) [Suspect]
     Indication: HEADACHE
  2. CARDIAC MEDICATION [Concomitant]
     Dosage: UNK
     Dates: start: 20110701
  3. MOTRIN [Concomitant]
     Indication: HEADACHE
  4. ACETAMINOPHEN [Concomitant]
     Indication: HEADACHE

REACTIONS (1)
  - HEADACHE [None]
